FAERS Safety Report 16525270 (Version 2)
Quarter: 2019Q3

REPORT INFORMATION
  Report Type: Spontaneous
  Country: US (occurrence: US)
  Receive Date: 20190702
  Receipt Date: 20190819
  Transmission Date: 20191004
  Serious: Yes (Other)
  Sender: FDA-Public Use
  Company Number: US-VIFOR (INTERNATIONAL) INC.-VIT-2019-06460

PATIENT
  Age: 76 Year
  Sex: Male
  Weight: 87.62 kg

DRUGS (7)
  1. WARFARIN [Concomitant]
     Active Substance: WARFARIN
  2. FUROSEMIDE. [Concomitant]
     Active Substance: FUROSEMIDE
  3. CELEXA [Concomitant]
     Active Substance: CITALOPRAM HYDROBROMIDE
  4. ENTRESTO [Concomitant]
     Active Substance: SACUBITRIL\VALSARTAN
     Dosage: 49 MG/ 51 MG
  5. CARVEDILOL. [Concomitant]
     Active Substance: CARVEDILOL
  6. VELTASSA [Suspect]
     Active Substance: PATIROMER
     Indication: HYPERKALAEMIA
     Route: 048
  7. VELTASSA [Suspect]
     Active Substance: PATIROMER
     Route: 048

REACTIONS (7)
  - Skin exfoliation [Unknown]
  - Blister rupture [Unknown]
  - Cellulitis [Unknown]
  - Product complaint [Unknown]
  - Blister [Recovering/Resolving]
  - Wound secretion [Unknown]
  - Inappropriate schedule of product administration [Recovered/Resolved]
